FAERS Safety Report 19371008 (Version 3)
Quarter: 2021Q3

REPORT INFORMATION
  Report Type: Report from Study
  Country: BR (occurrence: BR)
  Receive Date: 20210604
  Receipt Date: 20210913
  Transmission Date: 20211014
  Serious: Yes (Other)
  Sender: FDA-Public Use
  Company Number: NVSC2020BR060592

PATIENT
  Age: 33 Year
  Sex: Female

DRUGS (4)
  1. COSENTYX [Suspect]
     Active Substance: SECUKINUMAB
     Dosage: 150 MG, UNKNOWN
     Route: 065
  2. COSENTYX [Suspect]
     Active Substance: SECUKINUMAB
     Dosage: 300 MG, UNKNOWN
     Route: 065
  3. COSENTYX [Suspect]
     Active Substance: SECUKINUMAB
     Indication: PSORIASIS
     Dosage: 300 MG (TWO PENS), QW
     Route: 065
     Dates: start: 20200222
  4. COSENTYX [Suspect]
     Active Substance: SECUKINUMAB
     Dosage: 300 MG, UNKNOWN
     Route: 065
     Dates: start: 202002

REACTIONS (11)
  - Psoriasis [Not Recovered/Not Resolved]
  - Emotional distress [Unknown]
  - Product availability issue [Unknown]
  - Immunodeficiency [Unknown]
  - Pruritus [Recovered/Resolved]
  - Device leakage [Unknown]
  - Dermatitis [Unknown]
  - Skin discolouration [Not Recovered/Not Resolved]
  - Incorrect dose administered [Unknown]
  - Stress [Unknown]
  - Therapeutic product effect incomplete [Unknown]

NARRATIVE: CASE EVENT DATE: 202002
